FAERS Safety Report 8445754-2 (Version None)
Quarter: 2012Q2

REPORT INFORMATION
  Report Type: 
  Country: None (occurrence: None)
  Receive Date: 20120618
  Receipt Date: 20120608
  Transmission Date: 20120825
  Serious: Yes (Other)
  Sender: FDA-Public Use
  Company Number: FR-VIIV HEALTHCARE LIMITED-B0807969A

PATIENT
  Age: 46 Year
  Sex: Female

DRUGS (3)
  1. FOSAMPRENAVIR CALCIUM [Suspect]
     Indication: HIV INFECTION
     Route: 065
  2. NORDETTE-21 [Concomitant]
     Indication: CONTRACEPTION
     Route: 065
  3. NORVIR [Concomitant]
     Indication: HIV INFECTION
     Route: 065

REACTIONS (1)
  - HEPATOCELLULAR INJURY [None]
